FAERS Safety Report 6316269-2 (Version None)
Quarter: 2009Q3

REPORT INFORMATION
  Report Type: 
  Country: None (occurrence: None)
  Receive Date: 20090820
  Receipt Date: 20090818
  Transmission Date: 20100115
  Serious: Yes (Hospitalization)
  Sender: FDA-Public Use
  Company Number: BR-B.I. PHARMACEUTICALS,INC./RIDGEFIELD-2009-BR-00843BR

PATIENT
  Age: 84 Year
  Sex: Female

DRUGS (2)
  1. SPIRIVA [Suspect]
     Indication: ASTHMATIC CRISIS
     Dosage: 18 MCG
     Route: 055
     Dates: start: 20040101
  2. SYNTHROID [Concomitant]
     Indication: HYPOTHYROIDISM
     Dosage: NR

REACTIONS (5)
  - BLOOD PRESSURE INCREASED [None]
  - CARDIOVASCULAR DISORDER [None]
  - DRUG INEFFECTIVE [None]
  - HYPOTHYROIDISM [None]
  - MUSCLE SPASMS [None]
